FAERS Safety Report 10082415 (Version 1)
Quarter: 2014Q2

REPORT INFORMATION
  Report Type: Spontaneous
  Country: GB (occurrence: GB)
  Receive Date: 20140416
  Receipt Date: 20140416
  Transmission Date: 20141212
  Serious: Yes (Other)
  Sender: FDA-Public Use
  Company Number: PHFR2014GB002831

PATIENT
  Age: 77 Year
  Sex: Female

DRUGS (3)
  1. CLOZARIL [Suspect]
     Route: 048
     Dates: start: 20100819
  2. CLOZARIL [Suspect]
     Dosage: 350 MG, QHS
     Route: 048
  3. CLOZARIL [Suspect]
     Dosage: 325 MG,
     Route: 048

REACTIONS (2)
  - Mental disorder [Unknown]
  - Antipsychotic drug level increased [Unknown]
